FAERS Safety Report 13610259 (Version 1)
Quarter: 2017Q2

REPORT INFORMATION
  Report Type: Other
  Country: GB (occurrence: GB)
  Receive Date: 20170605
  Receipt Date: 20170605
  Transmission Date: 20170830
  Serious: Yes (Other)
  Sender: FDA-Public Use
  Company Number: GB-MACLEODS PHARMACEUTICALS US LTD-MAC2017005117

PATIENT

DRUGS (1)
  1. CLOPIDOGREL [Suspect]
     Active Substance: CLOPIDOGREL BISULFATE
     Indication: BRAIN STEM STROKE
     Dosage: 75 MG, UNK
     Route: 065

REACTIONS (2)
  - Muscle spasms [Recovered/Resolved]
  - Drug dose omission [Unknown]
